FAERS Safety Report 9714511 (Version 2)
Quarter: 2014Q1

REPORT INFORMATION
  Report Type: Spontaneous
  Country: US (occurrence: US)
  Receive Date: 20131126
  Receipt Date: 20140106
  Transmission Date: 20141002
  Serious: Yes (Other)
  Sender: FDA-Public Use
  Company Number: US-PFIZER INC-2013335611

PATIENT
  Age: 34 Year
  Sex: Female

DRUGS (5)
  1. LYRICA [Suspect]
     Indication: NERVE INJURY
     Dosage: 50 MG, 2X/DAY
  2. LYRICA [Suspect]
     Indication: HERPES ZOSTER
     Dosage: 150 MG, 2X/DAY
  3. LYRICA [Suspect]
     Dosage: 300 MG, 2X/DAY
     Dates: start: 2010
  4. HYDROCODONE [Concomitant]
     Indication: PAIN MANAGEMENT
     Dosage: UNK
  5. LOSARTAN [Concomitant]
     Dosage: UNK

REACTIONS (5)
  - Appendicitis [Unknown]
  - Arthropathy [Unknown]
  - Arthropathy [Unknown]
  - Herpes zoster [Recovered/Resolved]
  - Scar [Unknown]
